FAERS Safety Report 23720070 (Version 1)
Quarter: 2024Q2

REPORT INFORMATION
  Report Type: Spontaneous
  Country: CA (occurrence: CA)
  Receive Date: 20240408
  Receipt Date: 20240408
  Transmission Date: 20240716
  Serious: Yes (Death)
  Sender: FDA-Public Use
  Company Number: CA-002147023-NVSC2024CA072399

PATIENT
  Age: 70 Year
  Sex: Female

DRUGS (4)
  1. GALANTAMINE [Suspect]
     Active Substance: GALANTAMINE
     Indication: Corticobasal degeneration
     Dosage: UNK
     Route: 065
  2. DONEPEZIL HYDROCHLORIDE [Suspect]
     Active Substance: DONEPEZIL HYDROCHLORIDE
     Indication: Corticobasal degeneration
     Dosage: UNK
     Route: 065
  3. MEMANTINE HYDROCHLORIDE [Suspect]
     Active Substance: MEMANTINE HYDROCHLORIDE
     Indication: Corticobasal degeneration
     Dosage: UNK
     Route: 065
  4. RIVASTIGMINE TARTRATE [Suspect]
     Active Substance: RIVASTIGMINE TARTRATE
     Indication: Corticobasal degeneration
     Dosage: UNK
     Route: 065

REACTIONS (2)
  - Condition aggravated [Fatal]
  - Drug ineffective [Fatal]
